FAERS Safety Report 18754696 (Version 1)
Quarter: 2021Q1

REPORT INFORMATION
  Report Type: Spontaneous
  Country: US (occurrence: US)
  Receive Date: 20210119
  Receipt Date: 20210119
  Transmission Date: 20210419
  Serious: Yes (Death, Hospitalization, Other)
  Sender: FDA-Public Use
  Company Number: US-CIPLA LTD.-2021US00185

PATIENT

DRUGS (2)
  1. BUPROPION. [Suspect]
     Active Substance: BUPROPION
     Dosage: 90 TABLETS OF EXTENDED RELEASE 150 MG TABLETS
     Route: 048
  2. METHYLPHENIDATE. [Suspect]
     Active Substance: METHYLPHENIDATE
     Dosage: UNKNOWN AMOUNT
     Route: 048

REACTIONS (15)
  - Brain death [Fatal]
  - Electrocardiogram QT prolonged [Unknown]
  - Status epilepticus [Unknown]
  - Confusional state [Unknown]
  - Cardiac arrest [Recovered/Resolved]
  - Somnolence [Unknown]
  - Intentional overdose [Fatal]
  - Pain [Unknown]
  - Metabolic acidosis [Unknown]
  - Sinus tachycardia [Unknown]
  - Hypotension [Unknown]
  - Hyperhidrosis [Unknown]
  - Bradycardia [Unknown]
  - Toxicity to various agents [Fatal]
  - Generalised tonic-clonic seizure [Recovered/Resolved]
